FAERS Safety Report 13859779 (Version 3)
Quarter: 2017Q4

REPORT INFORMATION
  Report Type: Spontaneous
  Country: US (occurrence: US)
  Receive Date: 20170811
  Receipt Date: 20171110
  Transmission Date: 20180320
  Serious: No
  Sender: FDA-Public Use
  Company Number: US-PFIZER INC-2017345176

PATIENT
  Age: 71 Year
  Sex: Female
  Weight: 68.93 kg

DRUGS (2)
  1. SUTENT [Concomitant]
     Active Substance: SUNITINIB MALATE
     Dosage: UNK
     Dates: start: 201708
  2. LYRICA [Suspect]
     Active Substance: PREGABALIN
     Indication: SPINAL OPERATION
     Dosage: 75 MG, 2X/DAY
     Dates: start: 201705, end: 201710

REACTIONS (5)
  - Drug effect incomplete [Not Recovered/Not Resolved]
  - Vision blurred [Unknown]
  - Nerve injury [Unknown]
  - Muscular weakness [Not Recovered/Not Resolved]
  - Erythema [Not Recovered/Not Resolved]

NARRATIVE: CASE EVENT DATE: 2017
